FAERS Safety Report 4683333-3 (Version None)
Quarter: 2005Q2

REPORT INFORMATION
  Report Type: 
  Country: None (occurrence: None)
  Receive Date: 20050602
  Receipt Date: 20050211
  Transmission Date: 20051028
  Serious: No
  Sender: FDA-Public Use
  Company Number: 200510240BWH

PATIENT
  Age: 78 Year
  Sex: Male
  Weight: 75.7507 kg

DRUGS (4)
  1. LEVITRA [Suspect]
     Indication: ERECTILE DYSFUNCTION
     Dosage: 10 MG, ONCE, ORAL
     Route: 048
     Dates: start: 20050101
  2. BENICAR HCT [Concomitant]
  3. TIMOPTIC-XE [Concomitant]
  4. LUMIGAN [Concomitant]

REACTIONS (1)
  - ERECTILE DYSFUNCTION [None]
